FAERS Safety Report 8343811 (Version 2)
Quarter: 2012Q4

REPORT INFORMATION
  Report Type: 
  Country: AU (occurrence: AU)
  Receive Date: 20120119
  Receipt Date: 20120904
  Transmission Date: 20130627
  Serious: Yes (Life-Threatening, Disabling, Other)
  Sender: FDA-Public Use
  Company Number: AU-PFIZER INC-2012012130

PATIENT
  Age: 49 Year
  Sex: Male

DRUGS (2)
  1. CHAMPIX [Suspect]
     Indication: SMOKING CESSATION THERAPY
     Dosage: starter pack
     Dates: start: 201111, end: 2011
  2. CHAMPIX [Suspect]
     Dosage: 1 mg, UNK
     Dates: start: 2011, end: 201112

REACTIONS (13)
  - Loss of consciousness [Recovered/Resolved]
  - Psychotic disorder [Recovered/Resolved]
  - Panic attack [Recovered/Resolved]
  - Anxiety [Recovered/Resolved]
  - Verbal abuse [Recovered/Resolved]
  - Agitation [Recovered/Resolved]
  - Homicidal ideation [Recovered/Resolved]
  - Alcohol poisoning [Recovered/Resolved]
  - Legal problem [Recovered/Resolved]
  - Partner stress [Recovered/Resolved]
  - Suicidal ideation [Unknown]
  - Aggression [Unknown]
  - Feeling abnormal [Unknown]
